FAERS Safety Report 7607249-5 (Version None)
Quarter: 2011Q3

REPORT INFORMATION
  Report Type: 
  Country: None (occurrence: None)
  Receive Date: 20110713
  Receipt Date: 20110629
  Transmission Date: 20111222
  Serious: Yes (Hospitalization)
  Sender: FDA-Public Use
  Company Number: KR-BAYER-2011-012457

PATIENT
  Age: 48 Year
  Sex: Male
  Weight: 54.6 kg

DRUGS (107)
  1. MEK INHIBITOR (DIHYDROXYPROP-DIFLU-METHOXYPHEN-CYCLOPROPA-SULFAMI) [Suspect]
     Dosage: 30 MG, BID
     Route: 048
     Dates: start: 20110517
  2. SORAFENIB (RAF KINASE INHIBITOR) [Suspect]
     Dosage: 400 MG, QD
     Route: 048
     Dates: start: 20110516
  3. MEGESTROL ACETATE [Concomitant]
     Dosage: 20 ML, QD
     Route: 048
     Dates: start: 20110517
  4. ADALAT [Concomitant]
     Indication: HYPERTENSION
     Dosage: 30 MG, QD
     Route: 048
     Dates: start: 20110113, end: 20110113
  5. ALDACTONE [Concomitant]
     Dosage: 50 MG, BID
     Dates: start: 20110511
  6. LASIX [Concomitant]
     Indication: OEDEMA
     Dosage: 20 MG, BID
     Route: 048
     Dates: start: 20110131, end: 20110205
  7. LASIX [Concomitant]
     Dosage: 10 MG, BID
     Dates: start: 20110511, end: 20110511
  8. ALBUMIN (HUMAN) [Concomitant]
     Dosage: 100 ML, QD
     Route: 042
     Dates: start: 20110503, end: 20110504
  9. RED BLOOD CELLS [Concomitant]
     Indication: ANAEMIA
     Dosage: 400 ML, BID
     Route: 042
     Dates: start: 20110213, end: 20110213
  10. TRAMADOL HCL [Concomitant]
     Indication: ABDOMINAL PAIN
     Dosage: 50 MG, QD
     Route: 042
     Dates: start: 20110405, end: 20110405
  11. METOCLOPRAMIDE HYDROCHLORIDE [Concomitant]
     Indication: VOMITING
     Dosage: 10 MG, QD
     Route: 042
     Dates: start: 20110409, end: 20110416
  12. ERDOSTEINE [Concomitant]
     Indication: PRODUCTIVE COUGH
     Dosage: 300 MG, QD
     Route: 048
     Dates: start: 20110428, end: 20110428
  13. BANAN [Concomitant]
     Indication: ACUTE SINUSITIS
     Dosage: 200 MG, QD
     Route: 048
     Dates: start: 20110503, end: 20110503
  14. NORVASC [Concomitant]
     Indication: HYPERTENSION
     Dosage: 5 MG, QD
     Route: 048
     Dates: start: 20110523
  15. MEK INHIBITOR (DIHYDROXYPROP-DIFLU-METHOXYPHEN-CYCLOPROPA-SULFAMI) [Suspect]
     Dosage: 50 MG, QD
     Route: 048
     Dates: start: 20110301, end: 20110302
  16. DURAGESIC-100 [Concomitant]
     Indication: ABDOMINAL PAIN
     Dosage: 25 ?G, BIW
     Route: 062
     Dates: start: 20101214, end: 20110101
  17. LEGALON [Concomitant]
     Indication: HEPATITIS
     Dosage: 140 MG, TID
     Route: 048
     Dates: start: 20101214, end: 20110205
  18. ULTRAVIST 150 [Concomitant]
     Indication: COMPUTERISED TOMOGRAM
     Dosage: 140 ML, QD
     Route: 042
     Dates: start: 20110105, end: 20110105
  19. ADALAT [Concomitant]
     Dosage: 30 MG, QD
     Dates: start: 20110522, end: 20110522
  20. DIOVAN [Concomitant]
     Dosage: 40 MG, QD
     Route: 048
     Dates: start: 20110207
  21. ALLEGRA [Concomitant]
     Indication: PRURITUS
     Dosage: 180 MG, QD
     Dates: start: 20110215, end: 20110313
  22. TRAMADOL HCL [Concomitant]
     Dosage: 50 MG, TID
     Route: 042
     Dates: start: 20110406, end: 20110425
  23. NASONEX [Concomitant]
     Indication: RHINITIS
     Dosage: UNK UNK, PRN
     Route: 045
  24. REMERON [Concomitant]
     Indication: ANXIETY
     Dosage: 7.5 MG, QD
     Route: 048
     Dates: start: 20110430, end: 20110430
  25. TRIAZOLAM [Concomitant]
     Indication: ANXIETY
     Dosage: 0.25 MG, QD
     Route: 048
     Dates: start: 20110502, end: 20110502
  26. BANAN [Concomitant]
     Dosage: 200 MG, BID
     Dates: start: 20110509
  27. SORAFENIB (RAF KINASE INHIBITOR) [Suspect]
     Dosage: 600 MG (200 MG/400 MG), QD
     Route: 048
     Dates: start: 20110205, end: 20110205
  28. SORAFENIB (RAF KINASE INHIBITOR) [Suspect]
     Dosage: 400 MG, BID
     Dates: start: 20110215, end: 20110228
  29. DURAGESIC-100 [Concomitant]
     Dosage: 25 ?G, Q72HR
     Dates: start: 20110514
  30. HEPATAMINE [Concomitant]
     Indication: DECREASED APPETITE
     Dosage: 500 ML, QOD
     Route: 042
     Dates: start: 20101217, end: 20101231
  31. OXYCODONE HCL [Concomitant]
     Dosage: 10 MG, BID
     Route: 048
     Dates: start: 20101227
  32. ADALAT [Concomitant]
     Dosage: 30 MG, BID
     Route: 048
     Dates: start: 20110207
  33. ALBUMIN (HUMAN) [Concomitant]
     Indication: OEDEMA
     Dosage: 100 ML, QD
     Route: 042
     Dates: start: 20110209, end: 20110209
  34. SEROQUEL [Concomitant]
     Dosage: 50 MG, QD
     Route: 048
     Dates: start: 20110503
  35. TORSEMIDE [Concomitant]
     Indication: OEDEMA
     Dosage: 5 MG, BID
     Route: 048
     Dates: start: 20110503, end: 20110510
  36. K CONTIN [Concomitant]
     Indication: PROPHYLAXIS
     Dosage: 600 MG, TID
     Route: 048
     Dates: start: 20110504, end: 20110519
  37. AMPICILLIN SODIUM/SULBACTAM SODIUM [Concomitant]
     Dosage: 3 G, QD
     Route: 048
     Dates: start: 20110509, end: 20110509
  38. MEK INHIBITOR (DIHYDROXYPROP-DIFLU-METHOXYPHEN-CYCLOPROPA-SULFAMI) [Suspect]
     Dosage: 30 MG, QD
     Route: 048
     Dates: start: 20110516, end: 20110516
  39. SORAFENIB (RAF KINASE INHIBITOR) [Suspect]
     Dosage: 400 MG, BID
     Route: 048
     Dates: start: 20110303, end: 20110419
  40. MEGESTROL ACETATE [Concomitant]
     Indication: DECREASED APPETITE
     Dosage: 20 ML, QD
     Route: 048
     Dates: start: 20101219, end: 20110205
  41. DURAGESIC-100 [Concomitant]
     Dosage: 12.5 ?G, BIW
     Route: 062
     Dates: start: 20110124
  42. ACTIQ [Concomitant]
     Dosage: 0.8 MG, QID
     Route: 048
     Dates: start: 20101223
  43. ACTIQ [Concomitant]
     Dosage: 0.8 MG, QID
     Route: 048
     Dates: start: 20110302
  44. LIVACT [AMINO ACIDS NOS] [Concomitant]
     Indication: PROPHYLAXIS
     Dosage: 4.15 G, TID
     Route: 048
     Dates: start: 20101220, end: 20110205
  45. CEFOTAXIME [Concomitant]
     Indication: PROPHYLAXIS
     Dosage: 2 G, TID
     Route: 042
     Dates: start: 20101216, end: 20110105
  46. MORPHINE SULFATE [Concomitant]
     Dosage: 5 ML, QD
     Route: 042
     Dates: start: 20110101, end: 20110102
  47. LIPID EMULSION [Concomitant]
     Indication: DECREASED APPETITE
     Dosage: 500 ML, QOD
     Route: 042
     Dates: start: 20110104, end: 20110106
  48. ZOLPIDEM [Concomitant]
     Indication: PROPHYLAXIS
     Dosage: 12.5 MG, QD
     Route: 048
     Dates: start: 20110124, end: 20110205
  49. ALDACTONE [Concomitant]
     Dosage: 1 DF, BID
     Route: 048
     Dates: start: 20110207
  50. LASIX [Concomitant]
     Dosage: 20 MG, BID
     Route: 048
     Dates: start: 20110207
  51. PANTOPRAZOLE SODIUM [Concomitant]
     Indication: GASTRIC ULCER
     Dosage: 20 MG, QD
     Route: 048
     Dates: start: 20110314
  52. DESOWEN [Concomitant]
     Indication: PRURITUS
     Dosage: UNK UNK, PRN
     Route: 061
     Dates: start: 20110215, end: 20110424
  53. LACTITOL [Concomitant]
     Indication: CONSTIPATION
     Dosage: 20 G, QD
     Route: 048
     Dates: start: 20110428, end: 20110428
  54. TORSEMIDE [Concomitant]
     Dosage: 10 MG, QD
     Dates: start: 20110511
  55. AMPICILLIN SODIUM/SULBACTAM SODIUM [Concomitant]
     Indication: ACUTE SINUSITIS
     Dosage: 3 G, QID
     Route: 042
     Dates: start: 20110507, end: 20110508
  56. KYTRIL [Concomitant]
     Indication: NAUSEA
     Dosage: 1 MG, QD
     Route: 048
     Dates: start: 20110517, end: 20110524
  57. SILYMARIN [Concomitant]
     Indication: DECREASED APPETITE
     Dosage: 500 ML, QOD
     Route: 042
     Dates: start: 20101212, end: 20110101
  58. HEPATAMINE [Concomitant]
     Dosage: 500 ML, QD
     Route: 042
     Dates: start: 20110207, end: 20110207
  59. HEPATAMINE [Concomitant]
     Dosage: 500 ML, QD
     Route: 042
     Dates: start: 20110503, end: 20110503
  60. OXYCODONE HCL [Concomitant]
     Indication: ABDOMINAL PAIN
     Dosage: 10 MG, QD
     Route: 048
     Dates: start: 20101226, end: 20101226
  61. ULTRAVIST 150 [Concomitant]
     Dosage: 140 ML, QD
     Route: 042
     Dates: start: 20110511, end: 20110511
  62. ZOLPIDEM [Concomitant]
     Dosage: 12.5 MG, QD
     Route: 048
     Dates: start: 20110207
  63. ALBIS [Concomitant]
     Indication: HEPATITIS
     Dosage: 1 T, BID
     Route: 048
     Dates: start: 20110209, end: 20110209
  64. SEROQUEL [Concomitant]
     Indication: ANXIETY
     Dosage: 50 MG, QD
     Route: 048
     Dates: start: 20110424, end: 20110424
  65. TANTUM [Concomitant]
     Dosage: UNK UNK, PRN
     Dates: start: 20110424
  66. BARACLUDE [Concomitant]
     Indication: HEPATITIS B
     Dosage: 0.5 MG, QD
     Route: 048
     Dates: start: 20110427
  67. XANAX [Concomitant]
     Indication: ANXIETY
     Dosage: 0.25 MG, QD
     Route: 048
     Dates: start: 20110427, end: 20110427
  68. REMICUT [Concomitant]
     Indication: ACUTE SINUSITIS
     Dosage: 1 MG, QD
     Route: 048
     Dates: start: 20110503, end: 20110503
  69. REMICUT [Concomitant]
     Dosage: 1 MG, BID
     Dates: start: 20110504
  70. SPANTOL [Concomitant]
     Dosage: 80 MG, TID
     Route: 048
     Dates: start: 20110518
  71. MEK INHIBITOR (DIHYDROXYPROP-DIFLU-METHOXYPHEN-CYCLOPROPA-SULFAMI) [Suspect]
     Indication: HEPATIC NEOPLASM MALIGNANT
     Dosage: 50 MG, BID
     Route: 048
     Dates: start: 20110110, end: 20110130
  72. MEK INHIBITOR (DIHYDROXYPROP-DIFLU-METHOXYPHEN-CYCLOPROPA-SULFAMI) [Suspect]
     Dosage: 50 MG, BID
     Dates: start: 20110215, end: 20110228
  73. MEK INHIBITOR (DIHYDROXYPROP-DIFLU-METHOXYPHEN-CYCLOPROPA-SULFAMI) [Suspect]
     Dosage: 50 MG, BID
     Route: 048
     Dates: start: 20110303, end: 20110419
  74. SORAFENIB (RAF KINASE INHIBITOR) [Suspect]
     Indication: HEPATIC NEOPLASM MALIGNANT
     Dosage: 200/400 MG, QD
     Route: 048
     Dates: start: 20110110, end: 20110131
  75. SORAFENIB (RAF KINASE INHIBITOR) [Suspect]
     Dosage: 400 MG, QD
     Route: 048
     Dates: start: 20110214, end: 20110214
  76. SORAFENIB (RAF KINASE INHIBITOR) [Suspect]
     Dosage: 400 MG, QD
     Route: 048
     Dates: start: 20110420, end: 20110420
  77. BIPHENYL DICARBOXYLATE [Concomitant]
     Indication: HEPATITIS
     Dosage: 12.5 MG, TID
     Route: 048
     Dates: start: 20101214, end: 20110205
  78. LEGALON [Concomitant]
     Dosage: 140 MG, TID
     Route: 048
     Dates: start: 20110207
  79. SILYMARIN [Concomitant]
     Dosage: 500 ML, QD
     Route: 042
     Dates: start: 20110102, end: 20110102
  80. FREAMINE [Concomitant]
     Indication: DECREASED APPETITE
     Dosage: 500 ML, QOD
     Route: 042
     Dates: start: 20110103, end: 20110107
  81. ALDACTONE [Concomitant]
     Indication: OEDEMA
     Dosage: 1 DF, BID
     Route: 048
     Dates: start: 20110131, end: 20110205
  82. LASIX [Concomitant]
     Dosage: 1 ML, BID
     Dates: start: 20110503, end: 20110504
  83. UCERAX [Concomitant]
     Indication: PRURITUS
     Dosage: 25 MG, TID
     Dates: start: 20110201, end: 20110313
  84. ERDOSTEINE [Concomitant]
     Dosage: 300 MG, TID
     Route: 048
     Dates: start: 20110429
  85. BANAN [Concomitant]
     Dosage: 200 MG, BID
     Dates: start: 20110504, end: 20110506
  86. DEPAS [Concomitant]
     Indication: ANXIETY
     Dosage: 0.5 MG, QD
     Route: 048
     Dates: start: 20110507
  87. MEK INHIBITOR (DIHYDROXYPROP-DIFLU-METHOXYPHEN-CYCLOPROPA-SULFAMI) [Suspect]
     Dosage: 50 MG, QD
     Route: 048
     Dates: start: 20110214, end: 20110214
  88. SORAFENIB (RAF KINASE INHIBITOR) [Suspect]
     Dosage: 400 MG, BID
     Route: 048
     Dates: start: 20110201, end: 20110204
  89. MUTERAN [Concomitant]
     Indication: PRODUCTIVE COUGH
     Dosage: 200 MG, TID
     Route: 048
     Dates: start: 20101214, end: 20110205
  90. LIVACT [AMINO ACIDS NOS] [Concomitant]
     Dosage: 4.15 G, TID
     Route: 048
     Dates: start: 20110207
  91. DIOVAN [Concomitant]
     Indication: HYPERTENSION
     Dosage: 40 MG, QD
     Route: 048
     Dates: start: 20110113, end: 20110205
  92. Q-ROKEL [Concomitant]
     Indication: ANXIETY
     Dosage: 25 MG, QD
     Route: 048
     Dates: start: 20110425, end: 20110425
  93. LACTITOL [Concomitant]
     Dosage: 20 G, BID
     Route: 048
     Dates: start: 20110429
  94. SPANTOL [Concomitant]
     Indication: NAUSEA
     Dosage: 80 MG, QD
     Route: 048
     Dates: start: 20110517, end: 20110517
  95. SORAFENIB (RAF KINASE INHIBITOR) [Suspect]
     Dosage: 400 MG, QD
     Route: 048
     Dates: start: 20110301, end: 20110302
  96. MEGESTROL ACETATE [Concomitant]
     Dosage: 20 ML, QD
     Route: 048
     Dates: start: 20110207
  97. DURAGESIC-100 [Concomitant]
     Dosage: 25 ?G, BIW
     Route: 062
     Dates: start: 20110105, end: 20110123
  98. BIPHENYL DICARBOXYLATE [Concomitant]
     Dosage: 12.5 MG, TID
     Route: 048
     Dates: start: 20110207
  99. MUTERAN [Concomitant]
     Dosage: 200 MG, TID
     Route: 048
     Dates: start: 20110207, end: 20110313
  100. ACTIQ [Concomitant]
     Indication: ABDOMINAL PAIN
     Dosage: 0.6 MG, TID
     Route: 048
     Dates: start: 20101203, end: 20101222
  101. MORPHINE SULFATE [Concomitant]
     Indication: ABDOMINAL PAIN
     Dosage: 5 ML, QD
     Route: 042
     Dates: start: 20101230, end: 20101230
  102. ADALAT [Concomitant]
     Dosage: 30 MG, BID
     Route: 048
     Dates: start: 20110114, end: 20110205
  103. POFOL [Concomitant]
     Indication: COMPUTERISED TOMOGRAM
     Dosage: 80 MG, QD
     Dates: start: 20110214, end: 20110214
  104. RED BLOOD CELLS [Concomitant]
     Dosage: 400 ML, BID
     Route: 042
     Dates: start: 20110511, end: 20110511
  105. METOCLOPRAMIDE HYDROCHLORIDE [Concomitant]
     Dosage: 10 MG, TID
     Route: 042
     Dates: start: 20110425
  106. ERDOSTEINE [Concomitant]
     Dosage: 300 MG, TID
     Route: 048
     Dates: start: 20110520
  107. TORSEMIDE [Concomitant]
     Dosage: 5 MG, QD
     Dates: start: 20110511, end: 20110518

REACTIONS (2)
  - MYOPATHY [None]
  - DIARRHOEA [None]
